FAERS Safety Report 6458786-0 (Version None)
Quarter: 2009Q4

REPORT INFORMATION
  Report Type: 
  Country: None (occurrence: None)
  Receive Date: 20091127
  Receipt Date: 20091124
  Transmission Date: 20100525
  Serious: Yes (Other)
  Sender: FDA-Public Use
  Company Number: US-BRISTOL-MYERS SQUIBB COMPANY-14870869

PATIENT
  Age: 73 Year
  Sex: Female
  Weight: 78 kg

DRUGS (6)
  1. COUMADIN [Suspect]
     Indication: TACHYCARDIA
     Route: 048
     Dates: start: 20091001
  2. DETROL LA [Suspect]
     Indication: INCONTINENCE
     Dosage: MODIFIED-RELEASE CAPSULE ,SOFT
     Route: 048
     Dates: start: 20091001
  3. FURADANTIN [Suspect]
  4. HYDROCHLOROTHIAZIDE [Concomitant]
  5. ATENOLOL [Concomitant]
  6. ASPIRIN [Concomitant]

REACTIONS (2)
  - ARTHRITIS [None]
  - TACHYCARDIA [None]
